FAERS Safety Report 10573380 (Version 1)
Quarter: 2014Q4

REPORT INFORMATION
  Report Type: Spontaneous
  Country: US (occurrence: None)
  Receive Date: 20141030
  Receipt Date: 20141030
  Transmission Date: 20150529
  Serious: Yes (Other)
  Sender: FDA-Public Use
  Company Number: PHEH2014US017322

PATIENT
  Age: 44 Year
  Sex: Female

DRUGS (5)
  1. KEPPRA [Suspect]
     Active Substance: LEVETIRACETAM
     Indication: SEIZURE
     Dosage: EXP. DATE: 2008
  2. TRILEPTAL [Suspect]
     Active Substance: OXCARBAZEPINE
     Indication: SEIZURE
     Dosage: EXP. DATE: 2008
  3. XANAX [Concomitant]
     Active Substance: ALPRAZOLAM
  4. ZOLOFT [Concomitant]
     Active Substance: SERTRALINE HYDROCHLORIDE
  5. OXCARBAZEPINE (OXCARBAZEPINE) [Suspect]
     Active Substance: OXCARBAZEPINE

REACTIONS (5)
  - Expired product administered [None]
  - Dysarthria [None]
  - Dyskinesia [None]
  - Seizure [None]
  - Vision blurred [None]

NARRATIVE: CASE EVENT DATE: 20140826
